FAERS Safety Report 9362011 (Version 1)
Quarter: 2013Q2

REPORT INFORMATION
  Report Type: Spontaneous
  Country: US (occurrence: US)
  Receive Date: 20130621
  Receipt Date: 20130621
  Transmission Date: 20140414
  Serious: No
  Sender: FDA-Public Use
  Company Number: US-PFIZER INC-2013186680

PATIENT
  Age: 50 Year
  Sex: Female
  Weight: 47.62 kg

DRUGS (4)
  1. CHANTIX [Suspect]
     Indication: SMOKING CESSATION THERAPY
     Dosage: 0.5 MG, 1X/DAY
     Route: 048
     Dates: start: 201306
  2. CYMBALTA [Concomitant]
     Dosage: 60 MG, UNK
  3. TRAZODONE [Concomitant]
     Indication: SLEEP DISORDER
     Dosage: 150 MG, UNK
  4. PRAVASTATIN [Concomitant]
     Dosage: 100 MG, UNK

REACTIONS (3)
  - Dizziness [Unknown]
  - Vomiting [Unknown]
  - Nervousness [Unknown]
